FAERS Safety Report 13095665 (Version 1)
Quarter: 2017Q1

REPORT INFORMATION
  Report Type: Report from Study
  Country: US (occurrence: US)
  Receive Date: 20170109
  Receipt Date: 20170109
  Transmission Date: 20170428
  Serious: Yes (Other)
  Sender: FDA-Public Use
  Company Number: US-AMGEN-USASL2017001003

PATIENT
  Age: 45 Year
  Sex: Female

DRUGS (1)
  1. REPATHA [Suspect]
     Active Substance: EVOLOCUMAB
     Indication: PRODUCT USED FOR UNKNOWN INDICATION
     Dosage: UNK
     Route: 065
     Dates: start: 201603, end: 201610

REACTIONS (5)
  - Injection site pain [Unknown]
  - Weight decreased [Unknown]
  - Pain [Unknown]
  - Autoimmune disorder [Unknown]
  - Malaise [Unknown]

NARRATIVE: CASE EVENT DATE: 2016
